FAERS Safety Report 4691923-7 (Version None)
Quarter: 2005Q2

REPORT INFORMATION
  Report Type: 
  Country: None (occurrence: None)
  Receive Date: 20050614
  Receipt Date: 20050614
  Transmission Date: 20051028
  Serious: Yes (Hospitalization)
  Sender: FDA-Public Use
  Company Number: None

PATIENT
  Age: 52 Year
  Sex: Male

DRUGS (3)
  1. HYDROMORPHONE INJECTION [Suspect]
     Indication: BACK PAIN
  2. CLONIDINE [Suspect]
  3. ROPIVACAINE INJECTION [Suspect]

REACTIONS (6)
  - BRADYCARDIA [None]
  - CHEST PAIN [None]
  - HYPERTENSION [None]
  - INCORRECT ROUTE OF DRUG ADMINISTRATION [None]
  - MEDICATION ERROR [None]
  - SEDATION [None]
